FAERS Safety Report 6686908-5 (Version None)
Quarter: 2010Q2

REPORT INFORMATION
  Report Type: 
  Country: None (occurrence: None)
  Receive Date: 20100414
  Receipt Date: 20100329
  Transmission Date: 20101027
  Serious: Yes (Life-Threatening)
  Sender: FDA-Public Use
  Company Number: 556290

PATIENT
  Age: 47 Year
  Sex: Female
  Weight: 69 kg

DRUGS (2)
  1. PACLITAXEL [Suspect]
     Indication: BREAST NEOPLASM
     Dosage: 280 G, 3 WEEK, INTRAVENOUS
     Route: 042
     Dates: start: 20100129, end: 20100222
  2. ONDANSETRON [Concomitant]

REACTIONS (11)
  - ABDOMINAL PAIN UPPER [None]
  - CYANOSIS [None]
  - DYSPNOEA [None]
  - ERYTHEMA [None]
  - FEELING HOT [None]
  - HYPERSENSITIVITY [None]
  - HYPOTENSION [None]
  - ISCHAEMIC STROKE [None]
  - NAUSEA [None]
  - OEDEMA PERIPHERAL [None]
  - TACHYCARDIA [None]
